FAERS Safety Report 10227537 (Version 1)
Quarter: 2014Q2

REPORT INFORMATION
  Report Type: Spontaneous
  Country: US (occurrence: US)
  Receive Date: 20140610
  Receipt Date: 20140610
  Transmission Date: 20141212
  Serious: No
  Sender: FDA-Public Use
  Company Number: US-VIIV HEALTHCARE LIMITED-A1072302A

PATIENT
  Age: 71 Year
  Sex: Female

DRUGS (5)
  1. TIVICAY [Suspect]
     Indication: HIV INFECTION
     Dosage: 50MG TWICE PER DAY
     Route: 048
  2. DARUNAVIR [Concomitant]
  3. RITONAVIR [Concomitant]
  4. LORATADINE [Concomitant]
  5. SENOKOT [Concomitant]

REACTIONS (3)
  - Swelling [Recovering/Resolving]
  - Generalised erythema [Recovering/Resolving]
  - Pain [Recovering/Resolving]
